FAERS Safety Report 17975610 (Version 8)
Quarter: 2021Q2

REPORT INFORMATION
  Report Type: Report from Study
  Country: PL (occurrence: PL)
  Receive Date: 20200702
  Receipt Date: 20210419
  Transmission Date: 20210717
  Serious: Yes (Hospitalization, Other)
  Sender: FDA-Public Use
  Company Number: PL-EXELIXIS-XL18420030873

PATIENT
  Age: 71 Year
  Sex: Male
  Weight: 112 kg

DRUGS (13)
  1. PLUSCARD [Concomitant]
  2. XL184 [Suspect]
     Active Substance: CABOZANTINIB
     Indication: RENAL CELL CARCINOMA
     Dosage: 40 MG, QD
     Route: 048
     Dates: start: 20200521, end: 20200623
  3. XL184 [Suspect]
     Active Substance: CABOZANTINIB
     Dosage: 20 MG, QD
     Route: 048
     Dates: start: 20200825
  4. XL184 [Suspect]
     Active Substance: CABOZANTINIB
     Dosage: 20 MG
     Route: 048
     Dates: start: 20201119
  5. IPILIMUMAB [Suspect]
     Active Substance: IPILIMUMAB
     Indication: RENAL CELL CARCINOMA
     Dosage: 1 MG/KG, Q3WEEKS, 4 DOSES
     Route: 042
     Dates: start: 20200521, end: 20200609
  6. FORMETIC [Concomitant]
     Active Substance: METFORMIN HYDROCHLORIDE
  7. VINPOVEN [Concomitant]
  8. NIVOLUMAB [Suspect]
     Active Substance: NIVOLUMAB
     Indication: RENAL CELL CARCINOMA
     Dosage: 3 MG/KG, Q3WEEKS, 4 DOSES
     Route: 042
     Dates: start: 20200521, end: 20200609
  9. METFORMAX [Concomitant]
     Active Substance: METFORMIN HYDROCHLORIDE
  10. KARBICOMBI [Concomitant]
  11. GLIBETIC [Concomitant]
  12. OXYCARDIL [Concomitant]
     Active Substance: DILTIAZEM HYDROCHLORIDE
  13. SULPIRYD [Concomitant]
     Active Substance: SULPIRIDE

REACTIONS (4)
  - Neutropenia [Recovered/Resolved]
  - Asthenia [Recovered/Resolved]
  - Dyspnoea [Recovered/Resolved]
  - Transaminases increased [Recovered/Resolved]

NARRATIVE: CASE EVENT DATE: 20200617
